FAERS Safety Report 24770274 (Version 2)
Quarter: 2025Q1

REPORT INFORMATION
  Report Type: Spontaneous
  Country: US (occurrence: US)
  Receive Date: 20241224
  Receipt Date: 20250206
  Transmission Date: 20250408
  Serious: No
  Sender: GLAXOSMITHKLINE
  Company Number: US-GSK-US2024159635

PATIENT
  Sex: Female
  Weight: 83 kg

DRUGS (1)
  1. NUCALA [Suspect]
     Active Substance: MEPOLIZUMAB
     Indication: Asthma
     Dosage: 100 MG, Q4W
     Route: 058
     Dates: start: 20221010, end: 202409

REACTIONS (5)
  - Mental disorder [Recovered/Resolved]
  - Dyspnoea [Unknown]
  - Burning sensation [Unknown]
  - Fatigue [Unknown]
  - Drug ineffective [Unknown]
